FAERS Safety Report 11618752 (Version 2)
Quarter: 2015Q4

REPORT INFORMATION
  Report Type: Spontaneous
  Country: JP (occurrence: JP)
  Receive Date: 20151012
  Receipt Date: 20151028
  Transmission Date: 20160304
  Serious: Yes (Hospitalization)
  Sender: FDA-Public Use
  Company Number: JP-ROCHE-1644817

PATIENT
  Age: 48 Year
  Sex: Female
  Weight: 51 kg

DRUGS (6)
  1. DECADRON [Concomitant]
     Active Substance: DEXAMETHASONE
     Indication: ANTIEMETIC SUPPORTIVE CARE
     Route: 042
     Dates: start: 20150402
  2. SEROTONE [Concomitant]
     Active Substance: AZASETRON HYDROCHLORIDE
     Indication: ANTIEMETIC SUPPORTIVE CARE
     Route: 048
  3. DOXIL (JAPAN) [Concomitant]
     Indication: MALIGNANT PERITONEAL NEOPLASM
     Route: 042
     Dates: start: 20150402
  4. AVASTIN [Suspect]
     Active Substance: BEVACIZUMAB
     Indication: PRODUCT USED FOR UNKNOWN INDICATION
     Dosage: DOSAGE IS UNCERTAIN.?COMPLETED TREATMENT CYCLE NUMBER 4
     Route: 041
     Dates: start: 20150402, end: 20150915
  5. SEISHOKU [Concomitant]
     Active Substance: SODIUM CHLORIDE
     Dosage: DOSAGE IS UNCERTAIN.
     Route: 042
     Dates: start: 20150402
  6. AMLODIPINE [Concomitant]
     Active Substance: AMLODIPINE BESYLATE
     Indication: HYPERTENSION
     Route: 048
     Dates: start: 20150512

REACTIONS (1)
  - Pneumothorax [Not Recovered/Not Resolved]

NARRATIVE: CASE EVENT DATE: 20151002
